FAERS Safety Report 18760141 (Version 1)
Quarter: 2021Q1

REPORT INFORMATION
  Report Type: Spontaneous
  Country: FR (occurrence: FR)
  Receive Date: 20210120
  Receipt Date: 20210120
  Transmission Date: 20210419
  Serious: Yes (Other)
  Sender: FDA-Public Use
  Company Number: FR-BAUSCH-BL-2021-001944

PATIENT
  Age: 57 Year
  Sex: Male
  Weight: 47 kg

DRUGS (6)
  1. AUGMENTIN [Concomitant]
     Active Substance: AMOXICILLIN\CLAVULANATE POTASSIUM
     Indication: LUNG DISORDER
     Route: 048
     Dates: start: 20201116, end: 20201123
  2. SYMBICORT [Suspect]
     Active Substance: BUDESONIDE\FORMOTEROL FUMARATE DIHYDRATE
     Indication: ASTHMA
     Route: 055
     Dates: start: 20201116
  3. DEXAMETHASONE. [Suspect]
     Active Substance: DEXAMETHASONE
     Indication: CORONAVIRUS INFECTION
     Route: 042
     Dates: start: 20201116, end: 20201119
  4. VEKLURY [Concomitant]
     Active Substance: REMDESIVIR
     Indication: CORONAVIRUS INFECTION
     Route: 042
     Dates: start: 20201116, end: 20201119
  5. MEDROL [Suspect]
     Active Substance: METHYLPREDNISOLONE
     Indication: CORONAVIRUS INFECTION
     Dosage: 2CP / D (BREAKABLE TABLET)
     Route: 048
     Dates: start: 20201120, end: 20201125
  6. INNOHEP [Concomitant]
     Active Substance: TINZAPARIN SODIUM
     Indication: PRODUCT USED FOR UNKNOWN INDICATION
     Route: 058
     Dates: start: 20201116, end: 20201122

REACTIONS (1)
  - Blood glucose increased [Not Recovered/Not Resolved]

NARRATIVE: CASE EVENT DATE: 20201121
